FAERS Safety Report 8302510-3 (Version None)
Quarter: 2012Q2

REPORT INFORMATION
  Report Type: 
  Country: None (occurrence: None)
  Receive Date: 20120420
  Receipt Date: 20120405
  Transmission Date: 20120825
  Serious: Yes (Other)
  Sender: FDA-Public Use
  Company Number: CHPA2012US008842

PATIENT
  Age: 53 Year
  Sex: Female

DRUGS (4)
  1. EXCEDRIN BACK \+ BODY CAPLETS [Suspect]
     Indication: ARTHRITIS
     Dosage: 2 DF, UNK
     Route: 048
     Dates: start: 20101201
  2. ACETYLSALICYLIC ACID SRT [Concomitant]
     Indication: ARTHRITIS
     Dosage: UNK, UNK
     Route: 048
  3. TYLENOL (CAPLET) [Concomitant]
     Indication: ARTHRITIS
     Dosage: UNK, UNK
  4. EXCEDRIN (MIGRAINE) [Suspect]
     Indication: ARTHRITIS
     Dosage: 2 TO 4 DF, A DAY
     Route: 048

REACTIONS (2)
  - DRUG ADMINISTRATION ERROR [None]
  - ROAD TRAFFIC ACCIDENT [None]
